FAERS Safety Report 18068397 (Version 7)
Quarter: 2022Q3

REPORT INFORMATION
  Report Type: Report from Study
  Country: JP (occurrence: JP)
  Receive Date: 20200725
  Receipt Date: 20220916
  Transmission Date: 20221027
  Serious: Yes (Death, Hospitalization, Other)
  Sender: FDA-Public Use
  Company Number: JP-ONO-2020JP017267

PATIENT
  Age: 58 Year
  Sex: Male
  Weight: 52.6 kg

DRUGS (9)
  1. ETELCALCETIDE [Suspect]
     Active Substance: ETELCALCETIDE
     Indication: Hyperparathyroidism secondary
     Dosage: 2.5 MICROGRAM, 3 TIMES/WK
     Route: 010
     Dates: start: 20191122, end: 20200106
  2. ETELCALCETIDE [Suspect]
     Active Substance: ETELCALCETIDE
     Dosage: 5 MILLIGRAM, 2 TIMES/WK
     Route: 010
     Dates: start: 20200108, end: 20200120
  3. ETELCALCETIDE [Suspect]
     Active Substance: ETELCALCETIDE
     Dosage: 5 MILLIGRAM, 3 TIMES/WK
     Route: 010
     Dates: start: 20200122
  4. ALPROSTADIL ALFADEX [Suspect]
     Active Substance: ALPROSTADIL ALFADEX
     Indication: Skin ulcer
     Dosage: UNK
     Route: 061
  5. ALFAROL [Concomitant]
     Active Substance: ALFACALCIDOL
     Indication: Hyperparathyroidism secondary
     Dosage: 0.5 MICROGRAM, QD
     Route: 048
     Dates: end: 20200225
  6. MIRCERA [Concomitant]
     Active Substance: METHOXY POLYETHYLENE GLYCOL-EPOETIN BETA
     Dosage: 25 MICROGRAM, Q4WK
     Route: 042
     Dates: start: 20200124, end: 20200228
  7. CALCIUM CARBONATE [Concomitant]
     Active Substance: CALCIUM CARBONATE
     Dosage: 1500 MG
     Route: 048
     Dates: start: 20200422
  8. MAXACALCITOL [Concomitant]
     Active Substance: MAXACALCITOL
     Dosage: 5 MICROGRAM, QWK
     Route: 065
     Dates: start: 20220401
  9. Fesin [Concomitant]
     Dosage: 40 MG, QW
     Route: 065
     Dates: start: 20220128, end: 20220325

REACTIONS (18)
  - Bacteraemia [Fatal]
  - Pneumonia aspiration [Fatal]
  - Shunt occlusion [Recovered/Resolved]
  - Cellulitis [Recovered/Resolved]
  - Shunt occlusion [Recovered/Resolved]
  - Shunt occlusion [Recovered/Resolved]
  - Shunt stenosis [Recovered/Resolved]
  - Shunt stenosis [Recovered/Resolved]
  - Shunt stenosis [Recovered/Resolved]
  - Shunt stenosis [Recovered/Resolved]
  - Trigger finger [Recovered/Resolved]
  - Skin ulcer [Recovering/Resolving]
  - Shunt stenosis [Recovered/Resolved]
  - Shunt stenosis [Recovered/Resolved]
  - Shunt stenosis [Recovered/Resolved]
  - Shunt stenosis [Recovered/Resolved]
  - Carpal tunnel syndrome [Recovered/Resolved]
  - Rash [Recovered/Resolved]

NARRATIVE: CASE EVENT DATE: 20191217
